APPROVED DRUG PRODUCT: PERPHENAZINE
Active Ingredient: PERPHENAZINE
Strength: 8MG
Dosage Form/Route: TABLET;ORAL
Application: A205232 | Product #003 | TE Code: AB
Applicant: ZYDUS PHARMACEUTICALS USA INC
Approved: Apr 6, 2020 | RLD: No | RS: No | Type: RX